FAERS Safety Report 12386072 (Version 1)
Quarter: 2016Q2

REPORT INFORMATION
  Report Type: Report from Study
  Country: VN (occurrence: VN)
  Receive Date: 20160519
  Receipt Date: 20160519
  Transmission Date: 20160815
  Serious: Yes (Hospitalization)
  Sender: FDA-Public Use
  Company Number: VN-009507513-1605VNM005330

PATIENT
  Age: 62 Year
  Sex: Female

DRUGS (2)
  1. INSULIN [Concomitant]
     Active Substance: INSULIN NOS
     Dosage: 12 CC, TID
  2. JANUMET [Suspect]
     Active Substance: METFORMIN HYDROCHLORIDE\SITAGLIPTIN PHOSPHATE
     Dosage: 1 TABLET TWICE A DAY (1 TABLET AT NOON AND 1 TABLET IN THE AFTERNOON)
     Route: 048
     Dates: start: 20140601

REACTIONS (1)
  - Cardiac disorder [Recovering/Resolving]
